FAERS Safety Report 5244013-9 (Version None)
Quarter: 2007Q1

REPORT INFORMATION
  Report Type: 
  Country: None (occurrence: None)
  Receive Date: 20070222
  Receipt Date: 20070220
  Transmission Date: 20070707
  Serious: Yes (Life-Threatening, Other)
  Sender: FDA-Public Use
  Company Number: JP-JNJFOC-20070107233

PATIENT
  Sex: Male

DRUGS (3)
  1. ITRACONAZOLE [Suspect]
     Indication: NAIL TINEA
     Route: 048
     Dates: start: 20061018, end: 20061024
  2. ASTAT [Concomitant]
     Indication: NAIL TINEA
     Route: 061
  3. MENTAX [Concomitant]
     Indication: TINEA PEDIS
     Route: 061

REACTIONS (1)
  - ANGINA PECTORIS [None]
